FAERS Safety Report 7279400-0 (Version None)
Quarter: 2011Q1

REPORT INFORMATION
  Report Type: 
  Country: None (occurrence: None)
  Receive Date: 20110208
  Receipt Date: 20110128
  Transmission Date: 20110831
  Serious: Yes (Hospitalization)
  Sender: FDA-Public Use
  Company Number: US-BIOGENIDEC-2010BI043447

PATIENT
  Sex: Female

DRUGS (2)
  1. TYSABRI [Suspect]
     Indication: MULTIPLE SCLEROSIS
     Route: 042
     Dates: start: 20100602
  2. TYSABRI [Suspect]
     Route: 042
     Dates: start: 20060913, end: 20071205

REACTIONS (5)
  - SINUSITIS [None]
  - PRURITUS [None]
  - CHOLECYSTITIS [None]
  - CHOLELITHIASIS [None]
  - EXCORIATION [None]
